FAERS Safety Report 4303791-3 (Version None)
Quarter: 2004Q1

REPORT INFORMATION
  Report Type: 
  Country: None (occurrence: None)
  Receive Date: 20040224
  Receipt Date: 20040224
  Transmission Date: 20041129
  Serious: Yes (Hospitalization)
  Sender: FDA-Public Use
  Company Number: None

PATIENT
  Age: 43 Year
  Sex: Female
  Weight: 45.3597 kg

DRUGS (12)
  1. CYTOXAN [Suspect]
     Indication: MULTIPLE SCLEROSIS
     Dosage: 50 MG/KG DAILY X 4 INTRAVENOUS
     Route: 042
     Dates: start: 20031202, end: 20031205
  2. AMITRIPTYLINE 150 MG GENERIC [Suspect]
     Indication: INSOMNIA
     Dosage: 1 TABLET EACH NIGHT ORAL
     Route: 048
     Dates: start: 20031201, end: 20040211
  3. AMITRIPTYLINE 150 MG GENERIC [Suspect]
     Indication: NEUROPATHIC PAIN
     Dosage: 1 TABLET EACH NIGHT ORAL
     Route: 048
     Dates: start: 20031201, end: 20040211
  4. BACLOFEN [Concomitant]
  5. RESTORIL [Concomitant]
  6. DILANTIN [Concomitant]
  7. FOLIC ACID [Concomitant]
  8. ATIVAN [Concomitant]
  9. HYOSCYAMINE [Concomitant]
  10. SERTRALINE HCL [Concomitant]
  11. PANTOPRAZOLE [Concomitant]
  12. ASPIRIN [Concomitant]

REACTIONS (6)
  - CONFUSIONAL STATE [None]
  - DISORIENTATION [None]
  - INSOMNIA [None]
  - LIVER FUNCTION TEST ABNORMAL [None]
  - PYREXIA [None]
  - VIRAL INFECTION [None]
